FAERS Safety Report 7068452-9 (Version None)
Quarter: 2010Q4

REPORT INFORMATION
  Report Type: 
  Country: None (occurrence: None)
  Receive Date: 20101027
  Receipt Date: 20101027
  Transmission Date: 20110411
  Serious: Yes (Other)
  Sender: FDA-Public Use
  Company Number: None

PATIENT
  Age: 31 Year
  Sex: Female
  Weight: 49.4421 kg

DRUGS (2)
  1. CLARITHROMYCIN [Suspect]
     Indication: BRONCHITIS
     Dosage: ONE TABLET TWICE DAILY PO
     Route: 048
     Dates: start: 20101018, end: 20101024
  2. CLARITHROMYCIN [Suspect]
     Indication: PNEUMONIA
     Dosage: ONE TABLET TWICE DAILY PO
     Route: 048
     Dates: start: 20101018, end: 20101024

REACTIONS (6)
  - ANXIETY [None]
  - CANDIDIASIS [None]
  - DYSARTHRIA [None]
  - FEELING ABNORMAL [None]
  - LOSS OF CONSCIOUSNESS [None]
  - MEMORY IMPAIRMENT [None]
